FAERS Safety Report 4682517-8 (Version None)
Quarter: 2005Q2

REPORT INFORMATION
  Report Type: 
  Country: None (occurrence: None)
  Receive Date: 20050531
  Receipt Date: 20050323
  Transmission Date: 20051028
  Serious: No
  Sender: FDA-Public Use
  Company Number: 2005BI006623

PATIENT
  Age: 67 Year
  Sex: Female

DRUGS (2)
  1. AMEVIVE [Suspect]
     Indication: PSORIASIS
     Dosage: ,15 MG; QW; IM  15 MG; QW; IM
     Route: 030
     Dates: start: 20040715, end: 20041028
  2. AMEVIVE [Suspect]
     Indication: PSORIASIS
     Dosage: ,15 MG; QW; IM  15 MG; QW; IM
     Route: 030
     Dates: start: 20041216, end: 20050217

REACTIONS (2)
  - CD4 LYMPHOCYTES DECREASED [None]
  - FATIGUE [None]
